FAERS Safety Report 14912344 (Version 1)
Quarter: 2018Q2

REPORT INFORMATION
  Report Type: Spontaneous
  Country: FR (occurrence: FR)
  Receive Date: 20180518
  Receipt Date: 20180518
  Transmission Date: 20180711
  Serious: Yes (Other)
  Sender: FDA-Public Use
  Company Number: FR-MERCK KGAA-2048051

PATIENT
  Age: 63 Year
  Sex: Female

DRUGS (4)
  1. PREVISCAN (PENTOXIFYLLINE) [Concomitant]
     Active Substance: PENTOXIFYLLINE
  2. TEMERIT(NEBIVOLOL HYDROCHLORIDE)( [Concomitant]
  3. NOVOTHYROX [Suspect]
     Active Substance: LEVOTHYROXINE SODIUM
     Indication: PRODUCT USED FOR UNKNOWN INDICATION
  4. FLECAINE(FLECAINIDE ACETATE) [Concomitant]

REACTIONS (27)
  - Glomerular filtration rate decreased [None]
  - Blood triglycerides increased [None]
  - Personal relationship issue [None]
  - Alanine aminotransferase increased [None]
  - Impaired quality of life [None]
  - Depression [None]
  - N-terminal prohormone brain natriuretic peptide increased [None]
  - Headache [None]
  - Cerebrovascular accident [None]
  - Dyspnoea [None]
  - Gastrointestinal disorder [None]
  - Social avoidant behaviour [None]
  - Blood creatinine increased [None]
  - C-reactive protein increased [None]
  - Prothrombin level increased [None]
  - Aspartate aminotransferase increased [None]
  - Dizziness [None]
  - Weight increased [None]
  - Fatigue [None]
  - Anxiety [None]
  - Activated partial thromboplastin time prolonged [None]
  - Blood cholesterol increased [None]
  - Crying [None]
  - Blood thyroid stimulating hormone increased [None]
  - Transient ischaemic attack [None]
  - Feeling abnormal [None]
  - Blood osmolarity increased [None]

NARRATIVE: CASE EVENT DATE: 20170208
